FAERS Safety Report 20035104 (Version 1)
Quarter: 2021Q4

REPORT INFORMATION
  Report Type: Spontaneous
  Country: DE (occurrence: DE)
  Receive Date: 20211104
  Receipt Date: 20211104
  Transmission Date: 20220303
  Serious: Yes (Hospitalization, Other)
  Sender: FDA-Public Use
  Company Number: DE-ADRED-07003-01

PATIENT
  Age: 84 Year
  Sex: Male
  Weight: 82 kg

DRUGS (9)
  1. TRAMADOL [Suspect]
     Active Substance: TRAMADOL
     Indication: Product used for unknown indication
     Dosage: 100 MILLIGRAM, BID (1-0-1-0)
  2. ESCITALOPRAM [Suspect]
     Active Substance: ESCITALOPRAM OXALATE
     Indication: Product used for unknown indication
     Dosage: 2 DOSAGE FORM, QD (10 MILLIGRAM (2-0-0-0))
  3. RIVAROXABAN [Suspect]
     Active Substance: RIVAROXABAN
     Indication: Product used for unknown indication
     Dosage: 15 MILLIGRAM, QD (1-0-0-0)
  4. SPIRONOLACTONE [Concomitant]
     Active Substance: SPIRONOLACTONE
     Dosage: 25 MILLIGRAM, QD, 0-1-0-0
  5. RAMIPRIL [Concomitant]
     Active Substance: RAMIPRIL
     Dosage: 5 MILLIGRAM, BID (1-0-1-0)
  6. MIRTAZAPINE [Concomitant]
     Active Substance: MIRTAZAPINE
     Dosage: 0.5 DOSAGE FORM, QD (30 MILLIGRAM (0-0-0.5-0))
  7. ZOPICLONE [Concomitant]
     Active Substance: ZOPICLONE
     Dosage: 0.5 DOSAGE FORM, QD (7.5 MG, 0-0-0.5-0)
  8. AMLODIPIN                          /00972401/ [Concomitant]
     Dosage: 5 MILLIGRAM, BID (1-0-1-0)
  9. TAMSULOSIN [Concomitant]
     Active Substance: TAMSULOSIN
     Dosage: 0.4 MILLIGRAM, QD (0-0-1-0)

REACTIONS (6)
  - Arrhythmia [Unknown]
  - Urogenital haemorrhage [Unknown]
  - Atrial fibrillation [Unknown]
  - Nausea [Unknown]
  - Electrocardiogram abnormal [Unknown]
  - General physical health deterioration [Unknown]
